FAERS Safety Report 8573403-1 (Version None)
Quarter: 2012Q3

REPORT INFORMATION
  Report Type: 
  Country: None (occurrence: None)
  Receive Date: 20120806
  Receipt Date: 20120731
  Transmission Date: 20120928
  Serious: Yes (Hospitalization, Disabling)
  Sender: FDA-Public Use
  Company Number: CA-BRISTOL-MYERS SQUIBB COMPANY-16572232

PATIENT
  Age: 51 Year
  Sex: Male

DRUGS (3)
  1. IPILIMUMAB [Suspect]
     Indication: MALIGNANT MELANOMA
     Route: 042
     Dates: start: 20120208, end: 20120410
  2. IMODIUM [Concomitant]
     Dates: start: 20120403
  3. CRESTOR [Concomitant]

REACTIONS (3)
  - COLITIS [None]
  - INTESTINAL PERFORATION [None]
  - SEPTIC SHOCK [None]
